FAERS Safety Report 5400972-2 (Version None)
Quarter: 2007Q3

REPORT INFORMATION
  Report Type: 
  Country: None (occurrence: None)
  Receive Date: 20070730
  Receipt Date: 20070724
  Transmission Date: 20080115
  Serious: Yes (Life-Threatening, Hospitalization)
  Sender: FDA-Public Use
  Company Number: DE-MERCK-0707DEU00017

PATIENT
  Age: 61 Year
  Sex: Male
  Weight: 70 kg

DRUGS (1)
  1. ZETIA [Suspect]
     Indication: HYPERCHOLESTEROLAEMIA
     Route: 048
     Dates: start: 20061001, end: 20070401

REACTIONS (1)
  - HEPATOCELLULAR DAMAGE [None]
